FAERS Safety Report 4519349-7 (Version None)
Quarter: 2004Q4

REPORT INFORMATION
  Report Type: 
  Country: None (occurrence: None)
  Receive Date: 20041201
  Receipt Date: 20041122
  Transmission Date: 20050328
  Serious: Yes (Death)
  Sender: FDA-Public Use
  Company Number: A044-002-005324

PATIENT
  Sex: Male

DRUGS (2)
  1. ARICEPT [Suspect]
     Dosage: 5 MG, 1 IN 1 D, ORAL
     Route: 048
     Dates: start: 20041001
  2. WARFARIN SODIUM [Concomitant]

REACTIONS (2)
  - CEREBRAL HAEMORRHAGE [None]
  - HAEMATEMESIS [None]
